FAERS Safety Report 12286473 (Version 1)
Quarter: 2016Q2

REPORT INFORMATION
  Report Type: Spontaneous
  Country: CN (occurrence: CN)
  Receive Date: 20160420
  Receipt Date: 20160420
  Transmission Date: 20160815
  Serious: Yes (Hospitalization, Other)
  Sender: FDA-Public Use
  Company Number: CN-ACTAVIS-2016-08424

PATIENT
  Age: 27 Year
  Sex: Female

DRUGS (2)
  1. PREDNISONE (UNKNOWN) [Suspect]
     Active Substance: PREDNISONE
     Indication: RHEUMATOID ARTHRITIS
     Dosage: 5 MG, DAILY FOR MORE THEN 10 YEARS
     Route: 065
  2. HYDROXYCHLOROQUINE (UNKNOWN) [Suspect]
     Active Substance: HYDROXYCHLOROQUINE
     Indication: RHEUMATOID ARTHRITIS
     Dosage: 200 MG, DAILY FOR MORE THEN 10 YEARS
     Route: 065

REACTIONS (1)
  - Acute myocardial infarction [Recovered/Resolved]
